FAERS Safety Report 12704832 (Version 3)
Quarter: 2016Q3

REPORT INFORMATION
  Report Type: Report from Study
  Country: DE (occurrence: DE)
  Receive Date: 20160831
  Receipt Date: 20160922
  Transmission Date: 20161109
  Serious: No
  Sender: FDA-Public Use
  Company Number: DE-UCBSA-2016033067

PATIENT
  Sex: Female
  Weight: 97 kg

DRUGS (8)
  1. BLINDED PLACEBO [Suspect]
     Active Substance: INVESTIGATIONAL PRODUCT
     Indication: PSORIASIS
     Dosage: 1 ML, EV 2 WEEKS(QOW)
     Route: 058
     Dates: start: 20151030
  2. OMEPRAZOL [Concomitant]
     Active Substance: OMEPRAZOLE
     Indication: PROPHYLAXIS
     Dosage: 20 MG, ONCE DAILY (QD)
     Route: 048
     Dates: start: 20071127
  3. FUROSEMID [Concomitant]
     Active Substance: FUROSEMIDE
     Indication: HYPERTENSION
     Dosage: 20 MG, ONCE DAILY (QD)
     Route: 048
     Dates: start: 201107
  4. BLINDED CERTOLIZUMAB PEGOL [Suspect]
     Active Substance: CERTOLIZUMAB PEGOL
     Indication: PSORIASIS
     Dosage: 1 ML, EV 2 WEEKS(QOW)
     Route: 058
     Dates: start: 20151030
  5. METOPROLOL SUCCINATE. [Concomitant]
     Active Substance: METOPROLOL SUCCINATE
     Indication: HYPERTENSION
     Dosage: 47.5 MG, ONCE DAILY (QD)
     Route: 048
     Dates: start: 201403
  6. VELMETIA [Concomitant]
     Active Substance: METFORMIN\SITAGLIPTIN
     Indication: HYPERTENSION
     Dosage: 850 MG, 2X/DAY (BID) (STRENGTH : 50MG)
     Route: 048
     Dates: start: 2015
  7. ATORVASTATIN [Concomitant]
     Active Substance: ATORVASTATIN
     Indication: HYPERCHOLESTEROLAEMIA
     Dosage: 20 MG, ONCE DAILY (QD)
     Route: 048
     Dates: start: 20160708
  8. CANDESARTAN CILEXETIL AND HYDROCHLOROTHIAZIDE [Concomitant]
     Active Substance: CANDESARTAN CILEXETIL\HYDROCHLOROTHIAZIDE
     Indication: HYPERTENSION
     Dosage: 32 MG, ONCE DAILY (QD)
     Route: 048
     Dates: start: 201403

REACTIONS (1)
  - Pertussis [Recovered/Resolved]

NARRATIVE: CASE EVENT DATE: 20160801
